FAERS Safety Report 24648542 (Version 3)
Quarter: 2024Q4

REPORT INFORMATION
  Report Type: Spontaneous
  Country: CA (occurrence: CA)
  Receive Date: 20241121
  Receipt Date: 20241230
  Transmission Date: 20250114
  Serious: Yes (Other)
  Sender: TAKEDA
  Company Number: CA-TAKEDA-2024TUS114782

PATIENT
  Age: 34 Year
  Sex: Female

DRUGS (10)
  1. VYVANSE [Suspect]
     Active Substance: LISDEXAMFETAMINE DIMESYLATE
     Indication: Attention deficit hyperactivity disorder
     Dosage: 60 MILLIGRAM
  2. VYVANSE [Suspect]
     Active Substance: LISDEXAMFETAMINE DIMESYLATE
     Dosage: UNK
  3. AMITRIPTYLINE HYDROCHLORIDE [Concomitant]
     Active Substance: AMITRIPTYLINE HYDROCHLORIDE
     Dosage: UNK
  4. BILASTINE [Concomitant]
     Active Substance: BILASTINE
     Dosage: UNK UNK, QD
     Dates: start: 20240716
  5. ESCITALOPRAM [Concomitant]
     Active Substance: ESCITALOPRAM OXALATE
     Dosage: UNK UNK, QD
     Dates: start: 20240322
  6. MOMETASONE [Concomitant]
     Active Substance: MOMETASONE
     Dosage: UNK UNK, QD
     Dates: start: 20230623
  7. OLOPATADINE [Concomitant]
     Active Substance: OLOPATADINE
     Dosage: UNK UNK, BID
     Dates: start: 20230623
  8. KYLEENA [Concomitant]
     Active Substance: LEVONORGESTREL
     Dosage: UNK
  9. PAXLOVID [Concomitant]
     Active Substance: NIRMATRELVIR\RITONAVIR
     Dosage: UNK
  10. MELOXICAM [Concomitant]
     Active Substance: MELOXICAM
     Dosage: UNK UNK, QD
     Dates: start: 20220415

REACTIONS (18)
  - Joint swelling [Unknown]
  - Pain [Unknown]
  - Swelling [Not Recovered/Not Resolved]
  - Haemorrhage [Not Recovered/Not Resolved]
  - Cognitive disorder [Not Recovered/Not Resolved]
  - Fluid retention [Not Recovered/Not Resolved]
  - Paraesthesia [Not Recovered/Not Resolved]
  - Rash erythematous [Not Recovered/Not Resolved]
  - Withdrawal syndrome [Unknown]
  - Anxiety [Unknown]
  - Dyspnoea [Unknown]
  - Hyperhidrosis [Unknown]
  - Tremor [Unknown]
  - Dyspepsia [Unknown]
  - Product taste abnormal [Unknown]
  - Product physical issue [Unknown]
  - Product use issue [Recovered/Resolved]
  - Prescription form tampering [Unknown]

NARRATIVE: CASE EVENT DATE: 20241107
